FAERS Safety Report 5050615-5 (Version None)
Quarter: 2006Q3

REPORT INFORMATION
  Report Type: 
  Country: None (occurrence: None)
  Receive Date: 20060707
  Receipt Date: 20060621
  Transmission Date: 20061208
  Serious: Yes (Hospitalization)
  Sender: FDA-Public Use
  Company Number: PL-2005-005527

PATIENT
  Age: 49 Year
  Sex: Female

DRUGS (10)
  1. BETAFERON [Suspect]
     Indication: MULTIPLE SCLEROSIS
     Dosage: 250 OR 500 UG EVERY 2D, SUBCUTANEOUS
     Route: 058
     Dates: start: 20040715, end: 20050411
  2. BETAFERON [Suspect]
     Indication: MULTIPLE SCLEROSIS
     Dosage: 250 OR 500 UG EVERY 2D, SUBCUTANEOUS
     Route: 058
     Dates: start: 20050827
  3. PALIN (PIPEMIDIC ACID) [Concomitant]
  4. GUTRON (MIDODRINE HYDROCHLORIDE) [Concomitant]
  5. SOLU-MEDROL [Concomitant]
  6. PREMARIN [Concomitant]
  7. IMIPRAMINE [Concomitant]
  8. CITALOPRAM HYDROBROMIDE [Concomitant]
  9. MIANSERIN       (MIANSERIN) [Concomitant]
  10. VINPOCETINE            (VINPOCETINE) [Concomitant]

REACTIONS (5)
  - DEEP VEIN THROMBOSIS [None]
  - DELUSION [None]
  - MENTAL DISORDER [None]
  - REFUSAL OF TREATMENT BY PATIENT [None]
  - SPASTIC PARAPLEGIA [None]
